FAERS Safety Report 7884868-2 (Version None)
Quarter: 2011Q4

REPORT INFORMATION
  Report Type: 
  Country: None (occurrence: None)
  Receive Date: 20111102
  Receipt Date: 20111101
  Transmission Date: 20120403
  Serious: Yes (Death, Hospitalization)
  Sender: FDA-Public Use
  Company Number: PHHY2011US12841

PATIENT
  Sex: Male
  Weight: 99.32 kg

DRUGS (2)
  1. PREDNISONE [Concomitant]
     Dosage: 10 MG, UNK
     Route: 048
     Dates: start: 20110322
  2. AFINITOR [Suspect]
     Indication: RENAL CANCER
     Dosage: 5 MG, DAILY
     Route: 048
     Dates: start: 20101230, end: 20110417

REACTIONS (4)
  - NEOPLASM PROGRESSION [None]
  - NEOPLASM MALIGNANT [None]
  - OEDEMA PERIPHERAL [None]
  - NEPHROLITHIASIS [None]
